FAERS Safety Report 9404808 (Version 1)
Quarter: 2013Q3

REPORT INFORMATION
  Report Type: Spontaneous
  Country: ES (occurrence: ES)
  Receive Date: 20130717
  Receipt Date: 20130717
  Transmission Date: 20140515
  Serious: Yes (Hospitalization)
  Sender: FDA-Public Use
  Company Number: ES-SANOFI-AVENTIS-2013SA069553

PATIENT
  Age: 77 Year
  Sex: Male

DRUGS (8)
  1. CLEXANE [Suspect]
     Indication: ATRIAL FIBRILLATION
     Dosage: 80MG/12H
     Route: 058
     Dates: start: 20121015, end: 20121026
  2. PANTOPRAZOLE [Concomitant]
     Indication: PROPHYLAXIS AGAINST GASTROINTESTINAL ULCER
     Dosage: 40MG
     Route: 048
     Dates: start: 20121014
  3. PARACETAMOL [Concomitant]
     Indication: PAIN
     Dosage: 1GR/8H
     Route: 042
     Dates: start: 20121014, end: 20121026
  4. SIMVASTATIN [Concomitant]
     Indication: DYSLIPIDAEMIA
     Dosage: 1CP NOCHE
     Route: 048
     Dates: start: 2010, end: 20121026
  5. LEVOFLOXACIN [Concomitant]
     Indication: RESPIRATORY TRACT INFECTION
     Dosage: 500MG/24H
     Route: 042
     Dates: start: 20121014, end: 20121025
  6. SERETIDE [Concomitant]
     Indication: CHRONIC OBSTRUCTIVE PULMONARY DISEASE
     Dosage: 1INH/12H
     Route: 055
     Dates: start: 2006
  7. LORAZEPAM [Concomitant]
     Indication: INSOMNIA
     Dosage: 0-0-1
     Route: 048
     Dates: start: 2006
  8. SPIRIVA [Concomitant]
     Indication: CHRONIC OBSTRUCTIVE PULMONARY DISEASE
     Dosage: 1INH DIA
     Route: 055
     Dates: start: 2006

REACTIONS (3)
  - Hepatitis [Recovered/Resolved]
  - Hypovolaemic shock [Recovered/Resolved]
  - Muscle haemorrhage [Recovered/Resolved]
